FAERS Safety Report 8381775-6 (Version None)
Quarter: 2012Q2

REPORT INFORMATION
  Report Type: 
  Country: None (occurrence: None)
  Receive Date: 20120524
  Receipt Date: 20120512
  Transmission Date: 20120825
  Serious: Yes (Hospitalization)
  Sender: FDA-Public Use
  Company Number: AT-PAR PHARMACEUTICAL, INC-2012SCPR004385

PATIENT

DRUGS (17)
  1. GABAPENTIN [Suspect]
     Indication: BONE PAIN
     Dosage: 900 MG, / DAY (OVER 3 DAYS)
     Route: 065
  2. FENTANYL-100 [Suspect]
     Indication: PRODUCT USED FOR UNKNOWN INDICATION
     Dosage: 75 MCG, IN 72 HOURS
     Route: 062
  3. HYDROMORPHONE HCL [Concomitant]
     Dosage: 20 MG, BID
     Route: 048
  4. LEVOTHYROXINE SODIUM [Concomitant]
     Indication: PRODUCT USED FOR UNKNOWN INDICATION
     Dosage: 150 MCG, / DAY
     Route: 065
  5. ASPIRIN [Concomitant]
     Indication: PRODUCT USED FOR UNKNOWN INDICATION
     Dosage: 100 MG, / DAY
     Route: 065
  6. SIMVASTATIN [Concomitant]
     Indication: PRODUCT USED FOR UNKNOWN INDICATION
     Dosage: 40 MG, / DAY
     Route: 065
  7. HYDROMORPHONE HCL [Concomitant]
     Indication: PRODUCT USED FOR UNKNOWN INDICATION
     Dosage: 5.2 MG, UNK
     Route: 048
  8. ALPRAZOLAM [Suspect]
     Indication: PRODUCT USED FOR UNKNOWN INDICATION
     Dosage: 0.5 MG, / DAY
     Route: 065
  9. ANASTROZOLE [Concomitant]
     Indication: CANCER HORMONAL THERAPY
     Dosage: UNK, / DAY
     Route: 065
  10. DIAZEPAM [Suspect]
     Indication: PRODUCT USED FOR UNKNOWN INDICATION
     Dosage: 2 DF, / DAY
     Route: 065
  11. METOPROLOL [Concomitant]
     Indication: PRODUCT USED FOR UNKNOWN INDICATION
     Dosage: 47.5 MG, / DAY
     Route: 065
  12. NITROGLYCERIN [Concomitant]
     Indication: CANCER HORMONAL THERAPY
     Dosage: UNK, / DAY
     Route: 062
  13. POLYETHYLENE GLYCOL [Concomitant]
     Indication: PRODUCT USED FOR UNKNOWN INDICATION
     Dosage: UNK, / DAY
     Route: 065
  14. AMITRIPTYLINE HCL [Suspect]
     Indication: PRODUCT USED FOR UNKNOWN INDICATION
     Dosage: 100 MG, / DAY
     Route: 065
  15. FENTANYL-100 [Suspect]
     Dosage: 150 MCG, IN 72 HOURS
     Route: 062
  16. FLUOXETINE HCL [Suspect]
     Indication: PRODUCT USED FOR UNKNOWN INDICATION
     Dosage: 40 MG, / DAY
     Route: 065
  17. METAMIZOL [Concomitant]
     Indication: PRODUCT USED FOR UNKNOWN INDICATION
     Dosage: 4 G, / DAY
     Route: 065

REACTIONS (5)
  - DELIRIUM [None]
  - PNEUMONIA [None]
  - RENAL FAILURE [None]
  - STAPHYLOCOCCAL SEPSIS [None]
  - HEMIPARESIS [None]
